FAERS Safety Report 23221411 (Version 2)
Quarter: 2023Q4

REPORT INFORMATION
  Report Type: Spontaneous
  Country: FR (occurrence: FR)
  Receive Date: 20231123
  Receipt Date: 20231220
  Transmission Date: 20240110
  Serious: Yes (Hospitalization, Other)
  Sender: FDA-Public Use
  Company Number: None

PATIENT
  Age: 85 Year
  Weight: 79.9 kg

DRUGS (6)
  1. TAMSULOSIN HYDROCHLORIDE [Suspect]
     Active Substance: TAMSULOSIN HYDROCHLORIDE
     Indication: Benign prostatic hyperplasia
     Dosage: IN THE LONG TERM
     Route: 048
  2. DUTASTERIDE [Concomitant]
     Active Substance: DUTASTERIDE
     Indication: Benign prostatic hyperplasia
     Dosage: IN THE LONG TERM
     Route: 065
  3. YERVOY [Suspect]
     Active Substance: IPILIMUMAB
     Indication: Pleural mesothelioma malignant
     Dosage: DOSAGE: 3 CYCLICAL 86MG/COURSE
     Route: 065
     Dates: start: 20230117, end: 20230303
  4. ACETAMINOPHEN [Concomitant]
     Active Substance: ACETAMINOPHEN
     Indication: Pain
     Dosage: : IF NECESSARY
     Route: 065
  5. BISOPROLOL HYDROCHLOROTHIAZIDE BIOGARAN [Concomitant]
     Indication: Hypertension
     Dosage: DOSAGE TEXT: 5 MG/6.25 MG LONG TERM
     Route: 048
  6. OPDIVO [Suspect]
     Active Substance: NIVOLUMAB
     Indication: Pleural mesothelioma malignant
     Dosage: DOSAGE: 3 CYCLICAL DOSAGE TEXT: 360 MG/COURSE
     Route: 065
     Dates: start: 20230117, end: 20230303

REACTIONS (1)
  - Encephalitis autoimmune [Recovered/Resolved]

NARRATIVE: CASE EVENT DATE: 20230310
